FAERS Safety Report 7176385-2 (Version None)
Quarter: 2010Q4

REPORT INFORMATION
  Report Type: 
  Country: None (occurrence: None)
  Receive Date: 20101220
  Receipt Date: 20101208
  Transmission Date: 20110411
  Serious: Yes (Hospitalization)
  Sender: FDA-Public Use
  Company Number: AU-US-EMD SERONO, INC.-7031495

PATIENT
  Age: 44 Year
  Sex: Female

DRUGS (4)
  1. REBIF [Suspect]
     Indication: MULTIPLE SCLEROSIS
     Route: 030
  2. GLICLAZIDE [Concomitant]
  3. METFORMIN [Concomitant]
  4. METHYLPREDNISOLONE [Concomitant]

REACTIONS (4)
  - AUTOMATIC BLADDER [None]
  - INCORRECT ROUTE OF DRUG ADMINISTRATION [None]
  - NEPHROTIC SYNDROME [None]
  - UNEVALUABLE EVENT [None]
